FAERS Safety Report 9233684 (Version 2)
Quarter: 2014Q1

REPORT INFORMATION
  Report Type: Spontaneous
  Country: US (occurrence: US)
  Receive Date: 20130416
  Receipt Date: 20140204
  Transmission Date: 20141002
  Serious: Yes (Death, Hospitalization)
  Sender: FDA-Public Use
  Company Number: US-NOVOPROD-375298

PATIENT
  Age: 68 Year
  Sex: Male
  Weight: 117.91 kg

DRUGS (3)
  1. VICTOZA [Suspect]
     Indication: TYPE 2 DIABETES MELLITUS
     Dosage: 18 MG, QD
     Route: 058
     Dates: start: 20101013, end: 20101213
  2. BYETTA [Suspect]
     Indication: TYPE 2 DIABETES MELLITUS
     Dosage: 5 ?G, BID
     Route: 058
     Dates: start: 20080624, end: 20080819
  3. BYETTA [Suspect]
     Dosage: 10 ?G, BID
     Dates: start: 20080624, end: 20080926

REACTIONS (1)
  - Pancreatic carcinoma [Fatal]
